FAERS Safety Report 8520479-3 (Version None)
Quarter: 2012Q3

REPORT INFORMATION
  Report Type: 
  Country: None (occurrence: None)
  Receive Date: 20120719
  Receipt Date: 20120710
  Transmission Date: 20120928
  Serious: Yes (Hospitalization, Other)
  Sender: FDA-Public Use
  Company Number: US-BRISTOL-MYERS SQUIBB COMPANY-16676637

PATIENT
  Age: 65 Year
  Sex: Male
  Weight: 68 kg

DRUGS (4)
  1. GLIPIZIDE [Suspect]
     Indication: DIABETES MELLITUS
  2. IPILIMUMAB [Suspect]
     Indication: MALIGNANT MELANOMA
     Dosage: IPIL10MG/KG IV 90MIN,Q3WKX4DOS(INDUC) ;Q12WK;WKS24,26,48+60(MAIN) LST DOS ON 29MAY12 NO OF COU:2
     Route: 042
     Dates: start: 20120508, end: 20120529
  3. METFORMIN HCL [Suspect]
     Indication: DIABETES MELLITUS
  4. LOMOTIL [Concomitant]

REACTIONS (4)
  - FATIGUE [None]
  - HYPOGLYCAEMIA [None]
  - LOWER GASTROINTESTINAL HAEMORRHAGE [None]
  - COLITIS [None]
